FAERS Safety Report 4403912-8 (Version None)
Quarter: 2004Q3

REPORT INFORMATION
  Report Type: 
  Country: None (occurrence: None)
  Receive Date: 20040719
  Receipt Date: 20030911
  Transmission Date: 20050211
  Serious: Yes (Hospitalization)
  Sender: FDA-Public Use
  Company Number: TCI2003A03330

PATIENT
  Age: 81 Year
  Sex: Male

DRUGS (2)
  1. LANSOPRAZOLE [Suspect]
     Indication: DUODENAL ULCER
     Dosage: 30 MG (30 MG, 1 IN 1 D) PER ORAL
     Route: 048
     Dates: start: 20030128, end: 20030309
  2. CRAVIT (LEVOFLOXACIN) (PREPARATION FOR ORAL USE (NOS)) [Suspect]
     Indication: UPPER RESPIRATORY TRACT INFECTION
     Dosage: 300 MG (1 D) PER ORAL
     Route: 048
     Dates: start: 20030301, end: 20030325

REACTIONS (2)
  - NEPHRITIS INTERSTITIAL [None]
  - UPPER RESPIRATORY TRACT INFECTION [None]
